FAERS Safety Report 12706068 (Version 2)
Quarter: 2016Q3

REPORT INFORMATION
  Report Type: Spontaneous
  Country: US (occurrence: US)
  Receive Date: 20160901
  Receipt Date: 20160901
  Transmission Date: 20161109
  Serious: No
  Sender: FDA-Public Use
  Company Number: US-JAZZ-2016-US-007926

PATIENT
  Sex: Female
  Weight: 111.5 kg

DRUGS (16)
  1. XYREM [Suspect]
     Active Substance: SODIUM OXYBATE
     Indication: NARCOLEPSY
     Dosage: 2.5 G, BID
     Route: 048
     Dates: start: 201603
  2. NEXIUM [Concomitant]
     Active Substance: ESOMEPRAZOLE MAGNESIUM
  3. MULTIVITAMINS [Concomitant]
     Active Substance: VITAMINS
  4. VITAMIN D3 [Concomitant]
     Active Substance: CHOLECALCIFEROL
  5. XYREM [Suspect]
     Active Substance: SODIUM OXYBATE
     Indication: SOMNOLENCE
     Dosage: 2 G, BID
     Route: 048
     Dates: start: 201603, end: 201603
  6. LAMICTAL [Concomitant]
     Active Substance: LAMOTRIGINE
     Indication: BIPOLAR DISORDER
  7. ADDERALL [Concomitant]
     Active Substance: AMPHETAMINE ASPARTATE\AMPHETAMINE SULFATE\DEXTROAMPHETAMINE SACCHARATE\DEXTROAMPHETAMINE SULFATE
     Indication: NARCOLEPSY
     Dosage: UNK
  8. FISH OIL CONCENTRATE [Concomitant]
  9. LAMOTRIGINE. [Concomitant]
     Active Substance: LAMOTRIGINE
  10. LAMICTAL [Concomitant]
     Active Substance: LAMOTRIGINE
     Indication: POST-TRAUMATIC STRESS DISORDER
  11. PROBIOTIC [Concomitant]
     Active Substance: PROBIOTICS NOS
  12. RED YEAST RICE [Concomitant]
     Active Substance: DIETARY SUPPLEMENT
  13. EPIDUO [Concomitant]
     Active Substance: ADAPALENE\BENZOYL PEROXIDE
  14. HYDROXYCHLOROQUINE [Concomitant]
     Active Substance: HYDROXYCHLOROQUINE
     Indication: RHEUMATOID ARTHRITIS
  15. FLONASE [Concomitant]
     Active Substance: FLUTICASONE PROPIONATE
  16. ZANTAC [Concomitant]
     Active Substance: RANITIDINE HYDROCHLORIDE

REACTIONS (1)
  - Speech disorder [Not Recovered/Not Resolved]

NARRATIVE: CASE EVENT DATE: 2016
